FAERS Safety Report 4649207-9 (Version None)
Quarter: 2005Q2

REPORT INFORMATION
  Report Type: 
  Country: None (occurrence: None)
  Receive Date: 20050427
  Receipt Date: 20050404
  Transmission Date: 20051028
  Serious: Yes (Hospitalization)
  Sender: FDA-Public Use
  Company Number: GXKR2005TN00865

PATIENT
  Age: 29 Year
  Sex: Male

DRUGS (4)
  1. RIFAMPICIN [Suspect]
     Indication: DISSEMINATED TUBERCULOSIS
     Dosage: 600 MG QD
  2. ISONIAZID [Concomitant]
  3. PYRAZINAMIDE [Concomitant]
  4. STREPTOMYCIN [Concomitant]

REACTIONS (5)
  - BLOOD PRESSURE DECREASED [None]
  - BRONCHOSPASM [None]
  - DRUG HYPERSENSITIVITY [None]
  - PYREXIA [None]
  - TRANSAMINASES INCREASED [None]
